FAERS Safety Report 9687524 (Version 1)
Quarter: 2013Q4

REPORT INFORMATION
  Report Type: Spontaneous
  Country: US (occurrence: US)
  Receive Date: 20131114
  Receipt Date: 20131114
  Transmission Date: 20140711
  Serious: No
  Sender: FDA-Public Use
  Company Number: US-009507513-1310USA013967

PATIENT
  Age: 46 Year
  Sex: Female

DRUGS (4)
  1. VICTRELIS [Suspect]
     Indication: HEPATITIS C
     Dosage: 800 MG, TID
     Route: 048
     Dates: start: 201309
  2. RIBASPHERE [Concomitant]
     Dosage: UNK
     Dates: start: 201308, end: 201309
  3. PEGASYS [Concomitant]
     Dosage: UNK
     Dates: start: 201308
  4. PROCRIT [Concomitant]

REACTIONS (3)
  - Haematocrit decreased [Recovering/Resolving]
  - Dyspnoea [Recovering/Resolving]
  - Fatigue [Recovering/Resolving]
